FAERS Safety Report 9255673 (Version 1)
Quarter: 2013Q2

REPORT INFORMATION
  Report Type: Spontaneous
  Country: US (occurrence: US)
  Receive Date: 20130425
  Receipt Date: 20130425
  Transmission Date: 20140414
  Serious: No
  Sender: FDA-Public Use
  Company Number: US-PFIZER INC-2009180039

PATIENT
  Sex: Female

DRUGS (10)
  1. CHANTIX [Suspect]
     Indication: SMOKING CESSATION THERAPY
     Dosage: 0.5 MG, 1X/DAY
     Route: 048
     Dates: start: 20080425, end: 20080427
  2. CHANTIX [Suspect]
     Dosage: 0.5 MG, 2X/DAY
     Route: 048
     Dates: start: 20080428, end: 20080501
  3. CHANTIX [Suspect]
     Dosage: 1 MG, 2X/DAY
     Route: 048
     Dates: start: 20080502, end: 2008
  4. CHANTIX [Suspect]
     Dosage: 1 MG, 1X/DAY
     Route: 048
     Dates: start: 2008
  5. CHANTIX [Suspect]
     Dosage: 1 MG, 1X/DAY
     Route: 048
     Dates: start: 20090222
  6. CHANTIX [Suspect]
     Dosage: UNK
  7. AVALIDE [Concomitant]
     Dosage: UNK
  8. AMLODIPINE BESILATE [Concomitant]
     Dosage: UNK
  9. FENOFIBRATE [Concomitant]
     Dosage: UNK
  10. LISINOPRIL [Concomitant]
     Dosage: UNK

REACTIONS (5)
  - Drug ineffective [Unknown]
  - Stress [Recovering/Resolving]
  - Nausea [Recovered/Resolved]
  - Malaise [Recovered/Resolved]
  - Vomiting [Recovered/Resolved]
